FAERS Safety Report 22627481 (Version 1)
Quarter: 2023Q2

REPORT INFORMATION
  Report Type: Spontaneous
  Country: US (occurrence: US)
  Receive Date: 20230622
  Receipt Date: 20230622
  Transmission Date: 20230721
  Serious: Yes (Other)
  Sender: FDA-Public Use
  Company Number: US-MLMSERVICE-20230606-4331805-1

PATIENT
  Age: 52 Year
  Sex: Female

DRUGS (16)
  1. LISINOPRIL [Suspect]
     Active Substance: LISINOPRIL
     Indication: Product used for unknown indication
     Dosage: UNK
     Route: 065
  2. LORAZEPAM [Suspect]
     Active Substance: LORAZEPAM
     Indication: Nausea
     Dosage: UNK
     Route: 065
  3. SULFAMETHOXAZOLE AND TRIMETHOPRIM [Suspect]
     Active Substance: SULFAMETHOXAZOLE\TRIMETHOPRIM
     Indication: Stenotrophomonas infection
     Dosage: 2 DOSAGE FORM, BID  DOUBLE-STRENGTH
     Route: 065
  4. SULFAMETHOXAZOLE AND TRIMETHOPRIM [Suspect]
     Active Substance: SULFAMETHOXAZOLE\TRIMETHOPRIM
     Indication: Device related infection
     Dosage: 1 DOSAGE FORM, BID
     Route: 065
  5. SULFAMETHOXAZOLE AND TRIMETHOPRIM [Suspect]
     Active Substance: SULFAMETHOXAZOLE\TRIMETHOPRIM
     Indication: Arthritis infective
  6. MINOCYCLINE [Suspect]
     Active Substance: MINOCYCLINE HYDROCHLORIDE
     Indication: Stenotrophomonas infection
     Dosage: 100 MG, BID
     Route: 048
  7. MINOCYCLINE [Suspect]
     Active Substance: MINOCYCLINE HYDROCHLORIDE
     Indication: Device related infection
  8. MINOCYCLINE [Suspect]
     Active Substance: MINOCYCLINE HYDROCHLORIDE
     Indication: Arthritis infective
  9. LEVOFLOXACIN [Suspect]
     Active Substance: LEVOFLOXACIN
     Indication: Stenotrophomonas infection
     Dosage: UNK
     Route: 048
  10. LEVOFLOXACIN [Suspect]
     Active Substance: LEVOFLOXACIN
     Indication: Device related infection
  11. LEVOFLOXACIN [Suspect]
     Active Substance: LEVOFLOXACIN
     Indication: Arthritis infective
  12. CEFIDEROCOL [Concomitant]
     Active Substance: CEFIDEROCOL
     Indication: Device related infection
     Dosage: 2 GRAM, TID
     Route: 042
  13. CEFIDEROCOL [Concomitant]
     Active Substance: CEFIDEROCOL
     Indication: Stenotrophomonas infection
  14. CEFIDEROCOL [Concomitant]
     Active Substance: CEFIDEROCOL
     Indication: Arthritis infective
  15. LAPATINIB [Concomitant]
     Active Substance: LAPATINIB
     Indication: Breast cancer metastatic
     Dosage: UNK
     Route: 065
  16. ONDANSETRON [Concomitant]
     Active Substance: ONDANSETRON
     Indication: Nausea
     Dosage: UNK
     Route: 065

REACTIONS (3)
  - Hyperkalaemia [Recovered/Resolved]
  - Off label use [Unknown]
  - Therapeutic response unexpected [Unknown]
